FAERS Safety Report 5016301-2 (Version None)
Quarter: 2006Q2

REPORT INFORMATION
  Report Type: 
  Country: None (occurrence: None)
  Receive Date: 20060414
  Receipt Date: 20060125
  Transmission Date: 20061013
  Serious: No
  Sender: FDA-Public Use
  Company Number: 2006SP000436

PATIENT
  Age: 47 Year
  Sex: Female
  Weight: 104.3273 kg

DRUGS (4)
  1. LUNESTA [Suspect]
     Indication: INSOMNIA
     Dosage: 2 MG;PRN;ORAL
     Route: 048
     Dates: start: 20060120, end: 20060124
  2. LUNESTA [Suspect]
     Indication: MENOPAUSAL SYMPTOMS
     Dosage: 2 MG;PRN;ORAL
     Route: 048
     Dates: start: 20060120, end: 20060124
  3. ESTROGENS [Concomitant]
  4. VAGIFEM [Concomitant]

REACTIONS (2)
  - MIDDLE INSOMNIA [None]
  - NIGHTMARE [None]
